FAERS Safety Report 17255655 (Version 2)
Quarter: 2020Q1

REPORT INFORMATION
  Report Type: Spontaneous
  Country: US (occurrence: US)
  Receive Date: 20200110
  Receipt Date: 20200313
  Transmission Date: 20200409
  Serious: Yes (Death)
  Sender: FDA-Public Use
  Company Number: US-VIFOR (INTERNATIONAL) INC.-VIT-2020-00222

PATIENT
  Sex: Male
  Weight: 81 kg

DRUGS (25)
  1. CYPROHEPTADINE. [Concomitant]
     Active Substance: CYPROHEPTADINE
     Route: 048
  2. METOCLOPRAMIDE. [Concomitant]
     Active Substance: METOCLOPRAMIDE
     Dosage: BEFORE MEALS
     Route: 048
  3. ZOFRAN [Concomitant]
     Active Substance: ONDANSETRON HYDROCHLORIDE
     Dosage: AS NEEDED
     Route: 048
  4. LANTUS [Concomitant]
     Active Substance: INSULIN GLARGINE
     Dosage: U-100 PEN INJECT (7 UNITS EVERY NIGHT) AS DIRECTED
     Route: 058
  5. LISINOPRIL. [Concomitant]
     Active Substance: LISINOPRIL
     Indication: HYPERTENSION
     Dosage: 1 TABLET EVERY 12 HOURS
     Route: 048
  6. OXYCODONE AND ACETAMINOPHEN [Concomitant]
     Active Substance: ACETAMINOPHEN\OXYCODONE HYDROCHLORIDE
     Indication: PAIN
     Dosage: 10-325 MG (1 TABLET) AS NEEDED
     Route: 048
  7. AMLODIPINE [Concomitant]
     Active Substance: AMLODIPINE BESYLATE
     Dosage: AS DIRECTED
     Route: 048
  8. CLOPIDOGREL [Concomitant]
     Active Substance: CLOPIDOGREL BISULFATE
     Route: 048
  9. GABAPENTIN. [Concomitant]
     Active Substance: GABAPENTIN
     Dosage: AT BEDTIME
     Route: 048
  10. ZOLPIDEM [Concomitant]
     Active Substance: ZOLPIDEM TARTRATE
     Dosage: AT BEDTIME AS NEEDED
     Route: 048
  11. PANTOPRAZOLE [Concomitant]
     Active Substance: PANTOPRAZOLE
     Dosage: DELAYED RELEASE 1 TABLET BEFORE MEALS
     Route: 048
  12. MULTIVITAMIN [Concomitant]
     Active Substance: VITAMINS
     Dosage: EVERY EVENING
     Route: 048
  13. ASPIRIN. [Concomitant]
     Active Substance: ASPIRIN
     Dosage: AT BEDTIME
     Route: 048
  14. METOPROLOL SUCCINATE. [Concomitant]
     Active Substance: METOPROLOL SUCCINATE
     Dosage: EXTENDED RELEASE 24 HRS AS DIRECTED
     Route: 048
  15. VELPHORO [Suspect]
     Active Substance: FERRIC OXYHYDROXIDE
     Indication: HYPERPHOSPHATAEMIA
     Dosage: 2 TABLETS WITH MEALS (2 BEFORE EACH MEAL AND ONE BY SNACK).
     Route: 048
     Dates: end: 20191110
  16. VENOFER [Suspect]
     Active Substance: IRON SUCROSE
     Indication: PRODUCT USED FOR UNKNOWN INDICATION
     Route: 040
     Dates: end: 20190827
  17. HUMALOG [Concomitant]
     Active Substance: INSULIN LISPRO
     Dosage: KWIKPEN U-100 0-12 UNIT WITH MEALS PER SLIDING SCALE
     Route: 058
  18. SEVELAMER CARBONATE. [Concomitant]
     Active Substance: SEVELAMER CARBONATE
     Dosage: (2 TABLETS) WITH MEALS
     Route: 048
  19. SUCRALFATE. [Concomitant]
     Active Substance: SUCRALFATE
     Dosage: AS DIRECTED
     Route: 048
  20. MIRCERA [Suspect]
     Active Substance: METHOXY POLYETHYLENE GLYCOL-EPOETIN BETA
     Indication: PRODUCT USED FOR UNKNOWN INDICATION
     Route: 040
     Dates: end: 20190729
  21. ALBUTEROL SULFATE HFA [Concomitant]
     Active Substance: ALBUTEROL SULFATE
     Dosage: ACTUATION AEROSOL INHALER (2 PUFFS) AS NEEDED.
  22. NITROSTAT [Concomitant]
     Active Substance: NITROGLYCERIN
     Indication: CHEST PAIN
     Dosage: 1 TABLET UNDER TONGUE AS DIRECTED, REPEAT AFTER 5 MINUTES ONCE.
     Route: 048
  23. SERTRALINE [Concomitant]
     Active Substance: SERTRALINE HYDROCHLORIDE
     Dosage: AT BEDTIME
     Route: 048
  24. ATORVASTATIN [Concomitant]
     Active Substance: ATORVASTATIN
     Dosage: AT BEDTIME
     Route: 048
  25. ISOSORBIDE MONONITRATE. [Concomitant]
     Active Substance: ISOSORBIDE MONONITRATE
     Dosage: EXTENDED RELEASE 24 HRS (2 TABLETS)
     Route: 048

REACTIONS (4)
  - Cardiac arrest [Fatal]
  - Coronary artery disease [Fatal]
  - Cardiac failure congestive [Fatal]
  - Treatment noncompliance [Fatal]
